FAERS Safety Report 23440199 (Version 1)
Quarter: 2024Q1

REPORT INFORMATION
  Report Type: Spontaneous
  Country: CN (occurrence: CN)
  Receive Date: 20240124
  Receipt Date: 20240124
  Transmission Date: 20240410
  Serious: Yes (Other)
  Sender: FDA-Public Use
  Company Number: CN-TAKEDA-2024TUS005849

PATIENT
  Age: 65 Year
  Sex: Male

DRUGS (5)
  1. FRUQUINTINIB [Suspect]
     Active Substance: FRUQUINTINIB
     Indication: Colorectal cancer metastatic
     Dosage: 3 MILLIGRAM
     Route: 065
     Dates: start: 201910
  2. FRUQUINTINIB [Suspect]
     Active Substance: FRUQUINTINIB
     Indication: Metastases to liver
  3. FRUQUINTINIB [Suspect]
     Active Substance: FRUQUINTINIB
     Indication: Metastases to lung
  4. SINTILIMAB [Suspect]
     Active Substance: SINTILIMAB
     Indication: Colorectal cancer metastatic
     Dosage: 200 MILLIGRAM, Q3WEEKS
     Route: 065
     Dates: start: 201910
  5. SINTILIMAB [Suspect]
     Active Substance: SINTILIMAB
     Indication: Metastases to lung

REACTIONS (3)
  - Colorectal cancer metastatic [Unknown]
  - Proteinuria [Unknown]
  - Therapy partial responder [Unknown]

NARRATIVE: CASE EVENT DATE: 20200101
